FAERS Safety Report 6695874-8 (Version None)
Quarter: 2010Q2

REPORT INFORMATION
  Report Type: 
  Country: None (occurrence: None)
  Receive Date: 20100426
  Receipt Date: 20091101
  Transmission Date: 20101027
  Serious: No
  Sender: FDA-Public Use
  Company Number: A0815436A

PATIENT
  Age: 61 Year
  Sex: Female

DRUGS (1)
  1. ZOFRAN [Suspect]
     Indication: NAUSEA

REACTIONS (1)
  - DRUG INEFFECTIVE [None]
